FAERS Safety Report 9471208 (Version 1)
Quarter: 2013Q3

REPORT INFORMATION
  Report Type: Spontaneous
  Country: US (occurrence: US)
  Receive Date: 20130822
  Receipt Date: 20130822
  Transmission Date: 20140515
  Serious: No
  Sender: FDA-Public Use
  Company Number: US-TARO-2012P1053535

PATIENT
  Age: 74 Year
  Sex: Female
  Weight: 68.04 kg

DRUGS (1)
  1. TERBINAFINE HCL CREAM 1% (ATHLETES FOOT) [Suspect]
     Indication: RASH
     Route: 061
     Dates: start: 20120730, end: 20120807

REACTIONS (3)
  - Rash [Recovered/Resolved]
  - Blister [Recovering/Resolving]
  - Drug ineffective [Unknown]
